FAERS Safety Report 22020559 (Version 4)
Quarter: 2023Q2

REPORT INFORMATION
  Report Type: Spontaneous
  Country: ES (occurrence: ES)
  Receive Date: 20230222
  Receipt Date: 20230403
  Transmission Date: 20230722
  Serious: Yes (Hospitalization, Other)
  Sender: FDA-Public Use
  Company Number: ES-002147023-NVSC2023ES033234

PATIENT
  Age: 65 Year
  Sex: Male

DRUGS (62)
  1. CYCLOSPORINE [Suspect]
     Active Substance: CYCLOSPORINE
     Indication: Liver transplant
     Dosage: UNK
     Route: 048
     Dates: start: 2019
  2. CYCLOSPORINE [Suspect]
     Active Substance: CYCLOSPORINE
     Indication: Immunosuppressant drug therapy
     Dosage: 150 MG, UNKNOWN
     Route: 048
     Dates: start: 20201002
  3. CYCLOSPORINE [Suspect]
     Active Substance: CYCLOSPORINE
     Dosage: 150 MG, UNKNOWN
     Route: 048
     Dates: start: 20201005
  4. CYCLOSPORINE [Suspect]
     Active Substance: CYCLOSPORINE
     Dosage: 150 MG, UNKNOWN
     Route: 048
     Dates: start: 20210111
  5. CYCLOSPORINE [Suspect]
     Active Substance: CYCLOSPORINE
     Dosage: 150 MG, UNKNOWN
     Route: 048
     Dates: start: 20220323
  6. EVEROLIMUS [Suspect]
     Active Substance: EVEROLIMUS
     Indication: Liver transplant
     Dosage: UNK, QD
     Route: 065
     Dates: start: 2019
  7. EVEROLIMUS [Suspect]
     Active Substance: EVEROLIMUS
     Indication: Immunosuppressant drug therapy
     Dosage: 2 MG, QD
     Route: 065
     Dates: start: 20201002
  8. EVEROLIMUS [Suspect]
     Active Substance: EVEROLIMUS
     Dosage: 2 MG, QD
     Route: 065
     Dates: start: 20201005
  9. EVEROLIMUS [Suspect]
     Active Substance: EVEROLIMUS
     Dosage: 2 MG, QD
     Route: 065
     Dates: start: 20210111
  10. EVEROLIMUS [Suspect]
     Active Substance: EVEROLIMUS
     Dosage: 1.5 MG, QD
     Route: 065
     Dates: start: 20220323
  11. BISOPROLOL [Concomitant]
     Active Substance: BISOPROLOL
     Indication: Prophylaxis
     Dosage: 2.5 MG, UNKNOWN
     Route: 065
     Dates: start: 20201002
  12. BISOPROLOL [Concomitant]
     Active Substance: BISOPROLOL
     Indication: Atrial fibrillation
     Dosage: 2.5 MG, UNKNOWN
     Route: 065
     Dates: start: 20201005
  13. BISOPROLOL [Concomitant]
     Active Substance: BISOPROLOL
     Dosage: 2.5 MG, UNKNOWN
     Route: 065
     Dates: start: 20210111
  14. BISOPROLOL [Concomitant]
     Active Substance: BISOPROLOL
     Dosage: 2.5 MG, UNKNOWN
     Route: 065
     Dates: start: 20220323
  15. BISOPROLOL [Concomitant]
     Active Substance: BISOPROLOL
     Dosage: 2.5 MG
     Route: 065
  16. AMIODARONE [Concomitant]
     Active Substance: AMIODARONE
     Indication: Prophylaxis
     Dosage: 100 MG, UNKNOWN
     Route: 065
     Dates: start: 20201002
  17. AMIODARONE [Concomitant]
     Active Substance: AMIODARONE
     Indication: Atrial fibrillation
     Dosage: 100 MG, UNKNOWN
     Route: 065
     Dates: start: 20201005
  18. AMIODARONE [Concomitant]
     Active Substance: AMIODARONE
     Dosage: 100 MG, UNKNOWN
     Route: 065
     Dates: start: 20210111
  19. AMIODARONE [Concomitant]
     Active Substance: AMIODARONE
     Dosage: UNK
     Route: 065
     Dates: start: 20220323
  20. FUROSEMIDE [Concomitant]
     Active Substance: FUROSEMIDE
     Indication: Diuretic therapy
     Dosage: 20 MG, UNKNOWN
     Route: 065
     Dates: start: 20201002
  21. FUROSEMIDE [Concomitant]
     Active Substance: FUROSEMIDE
     Dosage: 20 MG, UNKNOWN
     Route: 065
     Dates: start: 20201005
  22. FUROSEMIDE [Concomitant]
     Active Substance: FUROSEMIDE
     Dosage: 20 MG, UNKNOWN
     Route: 065
     Dates: start: 20210111
  23. FUROSEMIDE [Concomitant]
     Active Substance: FUROSEMIDE
     Dosage: 40 MG, UNKNOWN
     Route: 065
     Dates: start: 20220323
  24. SACUBITRIL [Concomitant]
     Active Substance: SACUBITRIL
     Indication: Cardiac failure congestive
     Dosage: 48/52 MG, UNKNOWN
     Route: 065
     Dates: start: 20201002
  25. SACUBITRIL [Concomitant]
     Active Substance: SACUBITRIL
     Dosage: 48/52 MG, UNKNOWN
     Route: 065
     Dates: start: 20201005
  26. SACUBITRIL [Concomitant]
     Active Substance: SACUBITRIL
     Dosage: 48/52 MG, UNKNOWN
     Route: 065
     Dates: start: 20210111
  27. SACUBITRIL [Concomitant]
     Active Substance: SACUBITRIL
     Dosage: 24/26 MG, UNKNOWN
     Route: 065
     Dates: start: 20220323
  28. ACENOCOUMAROL [Concomitant]
     Active Substance: ACENOCOUMAROL
     Indication: Antiplatelet therapy
     Dosage: UNK
     Route: 065
     Dates: start: 20201002
  29. ACENOCOUMAROL [Concomitant]
     Active Substance: ACENOCOUMAROL
     Dosage: UNK
     Route: 065
     Dates: start: 20201005
  30. ACENOCOUMAROL [Concomitant]
     Active Substance: ACENOCOUMAROL
     Dosage: UNK
     Route: 065
     Dates: start: 20210111
  31. ACENOCOUMAROL [Concomitant]
     Active Substance: ACENOCOUMAROL
     Dosage: UNK
     Route: 065
     Dates: start: 20220323
  32. ATORVASTATIN [Concomitant]
     Active Substance: ATORVASTATIN
     Indication: Hypolipidaemia
     Dosage: 20 MG, UNKNOWN
     Route: 065
     Dates: start: 20220323
  33. OMEPRAZOLE [Concomitant]
     Active Substance: OMEPRAZOLE
     Indication: Prophylaxis
     Dosage: 20 MG, UNKNOWN
     Route: 065
     Dates: start: 20220323
  34. FOLIC ACID [Concomitant]
     Active Substance: FOLIC ACID
     Indication: Vitamin supplementation
     Dosage: 5 MG, UNKNOWN
     Route: 065
     Dates: start: 20201002
  35. FOLIC ACID [Concomitant]
     Active Substance: FOLIC ACID
     Dosage: 5 MG, UNKNOWN
     Route: 065
     Dates: start: 20201005
  36. FOLIC ACID [Concomitant]
     Active Substance: FOLIC ACID
     Dosage: 5 MG, UNKNOWN
     Route: 065
     Dates: start: 20210111
  37. FOLIC ACID [Concomitant]
     Active Substance: FOLIC ACID
     Dosage: 5 MG, QW
     Route: 065
     Dates: start: 20220323
  38. PYRIDOXINE HYDROCHLORIDE [Concomitant]
     Active Substance: PYRIDOXINE HYDROCHLORIDE
     Indication: Vitamin supplementation
     Dosage: 150 MG, UNKNOWN
     Route: 065
     Dates: start: 20201002
  39. PYRIDOXINE HYDROCHLORIDE [Concomitant]
     Active Substance: PYRIDOXINE HYDROCHLORIDE
     Dosage: 150 MG, UNKNOWN
     Route: 065
     Dates: start: 20201005
  40. PYRIDOXINE HYDROCHLORIDE [Concomitant]
     Active Substance: PYRIDOXINE HYDROCHLORIDE
     Dosage: 150 MG, UNKNOWN
     Route: 065
     Dates: start: 20210111
  41. PYRIDOXINE HYDROCHLORIDE [Concomitant]
     Active Substance: PYRIDOXINE HYDROCHLORIDE
     Dosage: 150 MG, UNKNOWN
     Route: 065
     Dates: start: 20220323
  42. EMPAGLIFLOZIN [Concomitant]
     Active Substance: EMPAGLIFLOZIN
     Indication: Diabetes mellitus
     Dosage: 10 MG, UNKNOWN
     Route: 048
     Dates: start: 20220323
  43. LACOSAMIDE [Concomitant]
     Active Substance: LACOSAMIDE
     Indication: Prophylaxis
     Dosage: 300 MG, UNKNOWN
     Route: 065
     Dates: start: 20201002
  44. LACOSAMIDE [Concomitant]
     Active Substance: LACOSAMIDE
     Dosage: 300 MG, UNKNOWN
     Route: 065
     Dates: start: 20201005
  45. LACOSAMIDE [Concomitant]
     Active Substance: LACOSAMIDE
     Dosage: 300 MG, UNKNOWN
     Route: 065
     Dates: start: 20210111
  46. LACOSAMIDE [Concomitant]
     Active Substance: LACOSAMIDE
     Dosage: 300 MG, UNKNOWN
     Route: 065
     Dates: start: 20220323
  47. CLONAZEPAM [Concomitant]
     Active Substance: CLONAZEPAM
     Indication: Prophylaxis
     Dosage: 4 MG, UNKNOWN
     Route: 065
     Dates: start: 20201002
  48. CLONAZEPAM [Concomitant]
     Active Substance: CLONAZEPAM
     Dosage: 2 MG, UNKNOWN
     Route: 065
     Dates: start: 20201005
  49. CLONAZEPAM [Concomitant]
     Active Substance: CLONAZEPAM
     Dosage: 2 MG, UNKNOWN
     Route: 065
     Dates: start: 20210111
  50. CLONAZEPAM [Concomitant]
     Active Substance: CLONAZEPAM
     Dosage: 3 MG, UNKNOWN
     Route: 065
     Dates: start: 20220323
  51. QUETIAPINE [Concomitant]
     Active Substance: QUETIAPINE
     Indication: Antipsychotic therapy
     Dosage: 100 MG, UNKNOWN
     Route: 065
     Dates: start: 20201002
  52. QUETIAPINE [Concomitant]
     Active Substance: QUETIAPINE
     Dosage: 100 MG, UNKNOWN
     Route: 065
     Dates: start: 20201005
  53. QUETIAPINE [Concomitant]
     Active Substance: QUETIAPINE
     Dosage: 100 MG, UNKNOWN
     Route: 065
     Dates: start: 20210111
  54. QUETIAPINE [Concomitant]
     Active Substance: QUETIAPINE
     Dosage: 100 MG, UNKNOWN
     Route: 065
     Dates: start: 20220323
  55. OLANZAPINE [Concomitant]
     Active Substance: OLANZAPINE
     Indication: Antipsychotic therapy
     Dosage: 15 MG, UNKNOWN
     Route: 065
     Dates: start: 20201002
  56. OLANZAPINE [Concomitant]
     Active Substance: OLANZAPINE
     Dosage: 15 MG, UNKNOWN
     Route: 065
     Dates: start: 20201005
  57. OLANZAPINE [Concomitant]
     Active Substance: OLANZAPINE
     Dosage: 15 MG, UNKNOWN
     Route: 065
     Dates: start: 20210111
  58. OLANZAPINE [Concomitant]
     Active Substance: OLANZAPINE
     Dosage: 15 MG, UNKNOWN
     Route: 065
     Dates: start: 20220323
  59. TIAPRIDE [Concomitant]
     Active Substance: TIAPRIDE
     Indication: Antipsychotic therapy
     Dosage: 600 MG, UNKNOWN
     Route: 065
     Dates: start: 20201002
  60. TIAPRIDE [Concomitant]
     Active Substance: TIAPRIDE
     Dosage: 500 MG, UNKNOWN
     Route: 065
     Dates: start: 20201005
  61. PATIROMER [Concomitant]
     Active Substance: PATIROMER
     Indication: Blood potassium increased
     Dosage: 33.6 MG, UNKNOWN
     Route: 065
     Dates: start: 20220323
  62. HERBALS\PLANTAGO OVATA LEAF [Concomitant]
     Active Substance: HERBALS\PLANTAGO OVATA LEAF
     Indication: Laxative supportive care
     Dosage: 3.5 MG, UNKNOWN
     Route: 065
     Dates: start: 20220323

REACTIONS (14)
  - Irritability [Unknown]
  - Agitation [Unknown]
  - Intrusive thoughts [Unknown]
  - Obsessive thoughts [Unknown]
  - Jealous delusion [Unknown]
  - Motor dysfunction [Unknown]
  - Confusional state [Unknown]
  - Hallucination [Unknown]
  - Depression [Unknown]
  - Anxiety [Unknown]
  - Delusion [Unknown]
  - Insomnia [Unknown]
  - Affective disorder [Unknown]
  - Delusion of replacement [Unknown]
